FAERS Safety Report 6553794-3 (Version None)
Quarter: 2010Q1

REPORT INFORMATION
  Report Type: 
  Country: None (occurrence: None)
  Receive Date: 20100127
  Receipt Date: 20100120
  Transmission Date: 20100710
  Serious: Yes (Hospitalization)
  Sender: FDA-Public Use
  Company Number: FR-ASTRAZENECA-2010SE02822

PATIENT
  Age: 22836 Day
  Sex: Male

DRUGS (3)
  1. DIPRIVAN [Suspect]
     Route: 042
     Dates: start: 20091110, end: 20091110
  2. RAPIFEN [Suspect]
     Route: 042
     Dates: start: 20091110, end: 20091110
  3. CELOCURINE [Suspect]
     Route: 042
     Dates: start: 20091110, end: 20091110

REACTIONS (4)
  - ANAPHYLACTIC SHOCK [None]
  - BRONCHOSPASM [None]
  - CIRCULATORY COLLAPSE [None]
  - GENERALISED ERYTHEMA [None]
